FAERS Safety Report 4809260-6 (Version None)
Quarter: 2005Q4

REPORT INFORMATION
  Report Type: 
  Country: None (occurrence: None)
  Receive Date: 20051021
  Receipt Date: 20051013
  Transmission Date: 20060501
  Serious: Yes (Hospitalization)
  Sender: FDA-Public Use
  Company Number: GXKR2005TR00759

PATIENT
  Age: 7 Year
  Sex: Male
  Weight: 25 kg

DRUGS (1)
  1. ISONIAZID [Suspect]
     Indication: ACCIDENTAL DRUG INTAKE BY CHILD
     Dosage: 1.5 G, ONCE/ SINGLE, ORAL
     Route: 048

REACTIONS (8)
  - ACCIDENTAL DRUG INTAKE BY CHILD [None]
  - ACCIDENTAL OVERDOSE [None]
  - DRUG TOXICITY [None]
  - GRAND MAL CONVULSION [None]
  - HYPERGLYCAEMIA [None]
  - LEUKOCYTOSIS [None]
  - LOSS OF CONSCIOUSNESS [None]
  - METABOLIC ACIDOSIS [None]
